FAERS Safety Report 4872103-9 (Version None)
Quarter: 2005Q4

REPORT INFORMATION
  Report Type: 
  Country: None (occurrence: None)
  Receive Date: 20051230
  Receipt Date: 20051214
  Transmission Date: 20060501
  Serious: Yes (Other)
  Sender: FDA-Public Use
  Company Number: FR-2005-024702

PATIENT
  Age: 69 Year
  Sex: Male
  Weight: 72 kg

DRUGS (4)
  1. FLUDARABINE PHOSPHAT (SH L 573) (FLUDARABINE PHOSPHATE (SH L 573)) INJ [Suspect]
     Indication: CHRONIC LYMPHOCYTIC LEUKAEMIA
     Dosage: 25 MG/M2, INTRAVENOUS
     Route: 042
     Dates: start: 20031103, end: 20040401
  2. CYCLOPHOSPHAMIDE [Suspect]
     Indication: CHRONIC LYMPHOCYTIC LEUKAEMIA
     Dosage: 250 MG/M2, INTRAVENOUS
     Route: 042
     Dates: start: 20031103, end: 20040401
  3. LEDERFOLIN [Concomitant]
  4. ASPIRIN [Concomitant]

REACTIONS (4)
  - ANAEMIA [None]
  - CHROMOSOME ANALYSIS ABNORMAL [None]
  - HERPES ZOSTER [None]
  - MYELODYSPLASTIC SYNDROME [None]
